FAERS Safety Report 5782611-4 (Version None)
Quarter: 2008Q2

REPORT INFORMATION
  Report Type: 
  Country: None (occurrence: None)
  Receive Date: 20080624
  Receipt Date: 20080613
  Transmission Date: 20081010
  Serious: Yes (Hospitalization, Other)
  Sender: FDA-Public Use
  Company Number: US-ABBOTT-08P-163-0458414-00

PATIENT
  Sex: Male
  Weight: 122.58 kg

DRUGS (9)
  1. HUMIRA [Suspect]
     Indication: RHEUMATOID ARTHRITIS
     Route: 058
     Dates: start: 20050101
  2. METHOTREXATE [Concomitant]
     Indication: RHEUMATOID ARTHRITIS
     Route: 048
     Dates: start: 20040101
  3. FUROSEMIDE [Concomitant]
     Indication: BLOOD PRESSURE
     Dosage: DAILY
     Route: 048
     Dates: start: 20040101
  4. FUROSEMIDE [Concomitant]
     Indication: FLUID RETENTION
  5. QUANIPRIL [Concomitant]
     Indication: BLOOD PRESSURE
     Dosage: DAILY
     Route: 048
     Dates: start: 20040101
  6. FOLIC ACID [Concomitant]
     Indication: BLOOD IRON
     Dosage: DAILY
     Route: 048
     Dates: start: 20040101
  7. ASPIRIN [Concomitant]
     Indication: THROMBOSIS PROPHYLAXIS
     Dosage: DAILY
     Route: 048
     Dates: start: 20040101
  8. CENTRUM SILVER [Concomitant]
     Indication: VITAMIN SUPPLEMENTATION
     Dosage: DAILY
     Route: 048
  9. CITRACEL [Concomitant]
     Indication: LAXATIVE SUPPORTIVE CARE
     Dosage: DAILY
     Route: 048

REACTIONS (8)
  - CATARACT [None]
  - FALL [None]
  - FLUSHING [None]
  - HEAD INJURY [None]
  - LACRIMATION INCREASED [None]
  - RETINAL DETACHMENT [None]
  - SENSORY DISTURBANCE [None]
  - SHOULDER ARTHROPLASTY [None]
